FAERS Safety Report 5269776-8 (Version None)
Quarter: 2007Q1

REPORT INFORMATION
  Report Type: 
  Country: None (occurrence: None)
  Receive Date: 20061213
  Receipt Date: 20030814
  Transmission Date: 20070707
  Serious: Yes (Other)
  Sender: FDA-Public Use
  Company Number: 2003UW10344

PATIENT
  Age: 56 Year
  Sex: Female
  Weight: 58.9676 kg

DRUGS (1)
  1. IRESSA [Suspect]
     Indication: NON-SMALL CELL LUNG CANCER
     Dosage: 250 MG
     Dates: start: 20030501

REACTIONS (1)
  - DIARRHOEA [None]
